FAERS Safety Report 4708875-3 (Version None)
Quarter: 2005Q3

REPORT INFORMATION
  Report Type: 
  Country: None (occurrence: None)
  Receive Date: 20050707
  Receipt Date: 20050622
  Transmission Date: 20060218
  Serious: Yes (Hospitalization, Other)
  Sender: FDA-Public Use
  Company Number: 2005091754

PATIENT
  Age: 70 Year
  Sex: Female
  Weight: 102.0593 kg

DRUGS (9)
  1. LIPITOR [Suspect]
     Indication: BLOOD CHOLESTEROL INCREASED
     Dosage: 10 MG (10 MG, 1 IN 1 D), ORAL
     Route: 048
  2. ZETIA [Suspect]
     Indication: BLOOD CHOLESTEROL
     Dosage: EVERY DAY
     Dates: start: 20050101
  3. NEURONTIN [Concomitant]
  4. ACTOS (PIOGLOTAZONE) [Concomitant]
  5. GLUCOTROL XL [Concomitant]
  6. ATACAND [Concomitant]
  7. PLAVIX [Concomitant]
  8. IMDUR [Concomitant]
  9. METOPROLOL TARTRATE [Concomitant]

REACTIONS (7)
  - BLOOD CHOLESTEROL INCREASED [None]
  - DIABETIC COMPLICATION [None]
  - DRUG INEFFECTIVE [None]
  - MUSCULOSKELETAL STIFFNESS [None]
  - MYOCARDIAL INFARCTION [None]
  - PAIN [None]
  - PAIN IN EXTREMITY [None]
